APPROVED DRUG PRODUCT: CEPHALEXIN
Active Ingredient: CEPHALEXIN
Strength: EQ 125MG BASE/5ML
Dosage Form/Route: FOR SUSPENSION;ORAL
Application: A062986 | Product #001
Applicant: APOTHECON INC DIV BRISTOL MYERS SQUIBB
Approved: Apr 18, 1991 | RLD: No | RS: No | Type: DISCN